FAERS Safety Report 7647610-6 (Version None)
Quarter: 2011Q3

REPORT INFORMATION
  Report Type: 
  Country: None (occurrence: None)
  Receive Date: 20110801
  Receipt Date: 20110718
  Transmission Date: 20111222
  Serious: Yes (Disabling, Other)
  Sender: FDA-Public Use
  Company Number: IT-TEVA-293127ISR

PATIENT
  Age: 61 Year
  Sex: Female

DRUGS (3)
  1. PREGINTERFERON ALFA [Suspect]
     Indication: LIVER INJURY
     Dates: start: 20061001
  2. RIBAVIRIN [Suspect]
     Indication: LIVER INJURY
     Dates: start: 20061001
  3. RIBAVIRIN [Suspect]
     Indication: HEPATITIS C

REACTIONS (3)
  - VOGT-KOYANAGI-HARADA SYNDROME [None]
  - SUDDEN VISUAL LOSS [None]
  - RETINAL DETACHMENT [None]
